FAERS Safety Report 5449947-8 (Version None)
Quarter: 2007Q3

REPORT INFORMATION
  Report Type: 
  Country: None (occurrence: None)
  Receive Date: 20070803
  Receipt Date: 20070611
  Transmission Date: 20080115
  Serious: No
  Sender: FDA-Public Use
  Company Number: 200710106BWH

PATIENT
  Age: 61 Year
  Sex: Female
  Weight: 48.9885 kg

DRUGS (11)
  1. NEXAVAR [Suspect]
     Indication: LEIOMYOSARCOMA METASTATIC
     Dosage: 400 MG, QD, ORAL
     Route: 048
     Dates: start: 20070106
  2. NEXAVAR [Suspect]
     Indication: METASTASES TO LIVER
     Dosage: 400 MG, QD, ORAL
     Route: 048
     Dates: start: 20070106
  3. NEXAVAR [Suspect]
     Indication: METASTASES TO LUNG
     Dosage: 400 MG, QD, ORAL
     Route: 048
     Dates: start: 20070106
  4. EFFEXOR [Concomitant]
  5. COMPAZINE [Concomitant]
  6. ZYRTEC [Concomitant]
  7. SANDOSTATIN [Concomitant]
  8. IMODIUM [Concomitant]
  9. ZOFRAN [Concomitant]
  10. LOMOTIL [ATROPINE SULFATE, DIPHENOXYLAT4E HYDROCHLORIDE] [Concomitant]
  11. NEXIUM [Concomitant]

REACTIONS (6)
  - COUGH [None]
  - DIARRHOEA [None]
  - DYSPNOEA [None]
  - FLATULENCE [None]
  - HEADACHE [None]
  - PAIN [None]
